FAERS Safety Report 6594073-8 (Version None)
Quarter: 2010Q1

REPORT INFORMATION
  Report Type: 
  Country: None (occurrence: None)
  Receive Date: 20100222
  Receipt Date: 20100210
  Transmission Date: 20100710
  Serious: Yes (Hospitalization)
  Sender: FDA-Public Use
  Company Number: US-ROCHE-647759

PATIENT
  Sex: Female
  Weight: 81.1 kg

DRUGS (17)
  1. BEVACIZUMAB [Suspect]
     Indication: GLIOBLASTOMA MULTIFORME
     Dosage: 780 MG, UNK
     Route: 042
     Dates: start: 20090520, end: 20090722
  2. TEMODAR [Suspect]
     Indication: GLIOBLASTOMA MULTIFORME
     Dosage: 150 MG, UNK
     Route: 048
     Dates: start: 20090520, end: 20090704
  3. TEMODAR [Suspect]
     Dosage: 150 MG
     Route: 048
     Dates: end: 20090722
  4. EVEROLIMUS [Suspect]
     Indication: GLIOBLASTOMA MULTIFORME
     Route: 048
     Dates: start: 20090827
  5. KEPPRA [Concomitant]
     Dosage: 1500 MG, BID
     Route: 048
     Dates: start: 20090409, end: 20090724
  6. KEPPRA [Concomitant]
     Dosage: 1500 MG, BID
     Route: 048
     Dates: start: 20090409, end: 20090724
  7. LORAZEPAM [Concomitant]
     Indication: DRUG USE FOR UNKNOWN INDICATION
     Dosage: 0.5 MG, UNK
     Dates: start: 20090515
  8. PEPCID [Concomitant]
     Indication: DRUG USE FOR UNKNOWN INDICATION
     Dosage: UNK
     Dates: start: 20090409
  9. DECADRON [Concomitant]
     Indication: DRUG USE FOR UNKNOWN INDICATION
     Dosage: UNK
     Dates: start: 20090409
  10. DILANTIN [Concomitant]
     Indication: DRUG USE FOR UNKNOWN INDICATION
  11. ZOLPIDEM [Concomitant]
     Indication: DRUG USE FOR UNKNOWN INDICATION
  12. PROCHLORPERAZINE [Concomitant]
     Indication: NAUSEA
     Dosage: 10 MG, PRN
     Dates: start: 20090515
  13. DIVALPROEX SODIUM [Concomitant]
     Indication: DRUG USE FOR UNKNOWN INDICATION
     Dates: start: 20090812
  14. DEPAKOTE [Concomitant]
     Indication: DRUG USE FOR UNKNOWN INDICATION
     Dosage: UNK
     Route: 048
     Dates: start: 20090812
  15. METOPROLOL TARTRATE [Concomitant]
     Indication: DRUG USE FOR UNKNOWN INDICATION
     Dosage: 75 MG, BID
     Dates: start: 20090812
  16. CITALOPRAM HYDROBROMIDE [Concomitant]
     Route: 048
     Dates: start: 20090409, end: 20090411
  17. LEVETIRACETAM [Concomitant]
     Dosage: 1500 MG, 3 TAB, PO, BID
     Route: 048
     Dates: start: 20090412

REACTIONS (5)
  - CONVULSION [None]
  - DEEP VEIN THROMBOSIS [None]
  - PAIN [None]
  - PYREXIA [None]
  - SYNCOPE [None]
